FAERS Safety Report 8173631-3 (Version None)
Quarter: 2012Q1

REPORT INFORMATION
  Report Type: 
  Country: None (occurrence: None)
  Receive Date: 20120227
  Receipt Date: 20120218
  Transmission Date: 20120608
  Serious: Yes (Hospitalization)
  Sender: FDA-Public Use
  Company Number: ACO_29451_2012

PATIENT
  Age: 71 Year
  Sex: Female

DRUGS (2)
  1. AMPYRA [Suspect]
     Indication: MULTIPLE SCLEROSIS
     Dosage: 10 MG, BID, ORAL
     Route: 048
     Dates: start: 20101201, end: 20120101
  2. TYSABRI [Concomitant]

REACTIONS (2)
  - INSOMNIA [None]
  - KIDNEY INFECTION [None]
